FAERS Safety Report 8096888 (Version 3)
Quarter: 2013Q2

REPORT INFORMATION
  Report Type: Spontaneous
  Country: BR (occurrence: BR)
  Receive Date: 20110818
  Receipt Date: 20130515
  Transmission Date: 20140414
  Serious: Yes (Hospitalization)
  Sender: FDA-Public Use
  Company Number: BR-US-EMD SERONO, INC.-7076330

PATIENT
  Age: 37 Year
  Sex: Female

DRUGS (6)
  1. REBIF [Suspect]
     Indication: SECONDARY PROGRESSIVE MULTIPLE SCLEROSIS
     Dates: start: 200208, end: 201002
  2. REBIF [Suspect]
     Indication: RELAPSING-REMITTING MULTIPLE SCLEROSIS
     Dates: start: 201002, end: 201301
  3. SIRDALUD [Concomitant]
     Indication: PRODUCT USED FOR UNKNOWN INDICATION
  4. LEXAPRO [Concomitant]
     Indication: PRODUCT USED FOR UNKNOWN INDICATION
  5. ESCITALOPRAM [Concomitant]
     Indication: DEPRESSION
  6. PARACETAMOL [Concomitant]
     Indication: PREMEDICATION

REACTIONS (4)
  - Musculoskeletal stiffness [Not Recovered/Not Resolved]
  - Asthenia [Recovered/Resolved]
  - Muscle spasticity [Recovering/Resolving]
  - Migraine [Recovering/Resolving]
